FAERS Safety Report 19731051 (Version 2)
Quarter: 2021Q3

REPORT INFORMATION
  Report Type: Report from Study
  Country: US (occurrence: US)
  Receive Date: 20210821
  Receipt Date: 20210921
  Transmission Date: 20211014
  Serious: No
  Sender: FDA-Public Use
  Company Number: NVSC2021US189352

PATIENT
  Sex: Female

DRUGS (1)
  1. MAYZENT [Suspect]
     Active Substance: SIPONIMOD
     Indication: MULTIPLE SCLEROSIS
     Dosage: 2 MG, QD
     Route: 048

REACTIONS (6)
  - Drug ineffective [Unknown]
  - Dizziness [Unknown]
  - Sensory disturbance [Unknown]
  - Sensory loss [Unknown]
  - Feeling abnormal [Unknown]
  - Headache [Unknown]
